FAERS Safety Report 14003280 (Version 1)
Quarter: 2017Q3

REPORT INFORMATION
  Report Type: Spontaneous
  Country: FR (occurrence: FR)
  Receive Date: 20170922
  Receipt Date: 20170922
  Transmission Date: 20171128
  Serious: Yes (Hospitalization)
  Sender: FDA-Public Use
  Company Number: FR-ACCORD-059090

PATIENT
  Age: 32 Year
  Sex: Male

DRUGS (1)
  1. OXALIPLATIN ACCORD [Suspect]
     Active Substance: OXALIPLATIN
     Indication: COLORECTAL CANCER
     Dosage: 199.75 MG PER DOSE
     Route: 042
     Dates: start: 20170731, end: 20170731

REACTIONS (6)
  - Hypotension [Recovered/Resolved]
  - Laryngospasm [Recovered/Resolved]
  - Hypovolaemic shock [Recovered/Resolved]
  - Hyperhidrosis [Recovered/Resolved]
  - Tongue oedema [Recovered/Resolved]
  - Rash [Recovered/Resolved]

NARRATIVE: CASE EVENT DATE: 20170731
